FAERS Safety Report 22208420 (Version 1)
Quarter: 2023Q2

REPORT INFORMATION
  Report Type: Other
  Country: US (occurrence: US)
  Receive Date: 20230413
  Receipt Date: 20230413
  Transmission Date: 20230722
  Serious: Yes (Hospitalization)
  Sender: FDA-Public Use
  Company Number: US-TRAVERE-2022TVT00558

PATIENT
  Age: 4 Year
  Sex: Male

DRUGS (10)
  1. CHOLBAM [Suspect]
     Active Substance: CHOLIC ACID
     Indication: Biliary obstruction
     Dosage: 50 MG, AS DIRECTED.
     Route: 048
     Dates: start: 20191109
  2. ELECARE JR [Concomitant]
  3. FERROUS SULFATE [Concomitant]
     Active Substance: FERROUS SULFATE
  4. HYDROXYZINE HYDROCHLORIDE [Concomitant]
     Active Substance: HYDROXYZINE HYDROCHLORIDE
  5. MICONAZOLE NITRATE [Concomitant]
     Active Substance: MICONAZOLE NITRATE
  6. DUOCAL [Concomitant]
  7. PEDIALYTE [Concomitant]
     Active Substance: POTASSIUM CITRATE\SODIUM CITRATE\ZINC
  8. VITAMIN K [Concomitant]
     Active Substance: PHYTONADIONE
  9. RIFAMPIN [Concomitant]
     Active Substance: RIFAMPIN
  10. URSODIOL [Concomitant]
     Active Substance: URSODIOL

REACTIONS (1)
  - COVID-19 [Unknown]
